FAERS Safety Report 4577498-1 (Version None)
Quarter: 2005Q1

REPORT INFORMATION
  Report Type: 
  Country: None (occurrence: None)
  Receive Date: 20050208
  Receipt Date: 20050126
  Transmission Date: 20050727
  Serious: Yes (Hospitalization)
  Sender: FDA-Public Use
  Company Number: 2005022063

PATIENT
  Age: 76 Year
  Sex: Female

DRUGS (13)
  1. CELEBREX [Suspect]
     Indication: ILL-DEFINED DISORDER
     Dosage: ORAL
     Route: 048
     Dates: end: 20040927
  2. PIRACETAM (PIRACETAM) [Suspect]
     Indication: ILL-DEFINED DISORDER
     Dosage: ORAL
     Route: 048
     Dates: end: 20040927
  3. OMEPRAZOLE [Suspect]
     Indication: ILL-DEFINED DISORDER
     Dates: end: 20040927
  4. FENTANYL [Suspect]
     Indication: ILL-DEFINED DISORDER
     Dosage: TOPICAL
     Route: 061
     Dates: end: 20040927
  5. GLYBURIDE [Suspect]
     Indication: ILL-DEFINED DISORDER
     Dosage: (5 MG), ORAL
     Route: 048
     Dates: end: 20040927
  6. PAROXETINE HCL [Suspect]
     Indication: ILL-DEFINED DISORDER
     Dosage: (20 MG), ORAL
     Route: 048
     Dates: end: 20040927
  7. RISPERDAL [Concomitant]
  8. METFORMIN HCL [Concomitant]
  9. ACARBOSE (ACARBOSE) [Concomitant]
  10. NIFEDIPINE [Concomitant]
  11. NITROGLYCERIN [Concomitant]
  12. ALPRAZOLAM (ALPRAZOLAM) [Concomitant]
  13. FOSINOPRIL SODIUM [Concomitant]

REACTIONS (2)
  - EXTRAPYRAMIDAL DISORDER [None]
  - PERSONALITY CHANGE [None]
